FAERS Safety Report 7016633-2 (Version None)
Quarter: 2010Q3

REPORT INFORMATION
  Report Type: 
  Country: None (occurrence: None)
  Receive Date: 20100927
  Receipt Date: 20100920
  Transmission Date: 20110219
  Serious: Yes (Hospitalization)
  Sender: FDA-Public Use
  Company Number: B0676143A

PATIENT
  Sex: Male

DRUGS (3)
  1. AUGMENTIN '125' [Suspect]
     Indication: INFECTION
     Dosage: 1G TWICE PER DAY
     Route: 048
     Dates: start: 20100904, end: 20100907
  2. ACETYLSALICYLIC ACID [Concomitant]
  3. CETIRIZINE HCL [Concomitant]
     Dosage: 10MG PER DAY
     Route: 048
     Dates: start: 20100908, end: 20100908

REACTIONS (2)
  - PRURIGO [None]
  - SKIN DISORDER [None]
